FAERS Safety Report 7756878-7 (Version None)
Quarter: 2011Q3

REPORT INFORMATION
  Report Type: 
  Country: None (occurrence: None)
  Receive Date: 20110916
  Receipt Date: 20110913
  Transmission Date: 20111222
  Serious: Yes (Hospitalization)
  Sender: FDA-Public Use
  Company Number: US-GLAXOSMITHKLINE-A0809595A

PATIENT
  Age: 53 Year
  Sex: Male

DRUGS (1)
  1. AVANDIA [Suspect]
     Indication: DIABETES MELLITUS
     Dosage: 8MG PER DAY
     Route: 048
     Dates: start: 20010801, end: 20070601

REACTIONS (9)
  - REPERFUSION INJURY [None]
  - SHOCK [None]
  - CORONARY ARTERY DISEASE [None]
  - HYPOTENSION [None]
  - BRADYCARDIA [None]
  - ANGINA UNSTABLE [None]
  - CARDIAC ARREST [None]
  - MYOCARDIAL INFARCTION [None]
  - MYOCARDIAL ISCHAEMIA [None]
